FAERS Safety Report 8576231-6 (Version None)
Quarter: 2012Q3

REPORT INFORMATION
  Report Type: 
  Country: None (occurrence: None)
  Receive Date: 20120807
  Receipt Date: 20120731
  Transmission Date: 20120928
  Serious: Yes (Hospitalization, Other)
  Sender: FDA-Public Use
  Company Number: GB-PFIZER INC-2012185224

PATIENT
  Age: 23 Year
  Sex: Female
  Weight: 60 kg

DRUGS (4)
  1. CISPLATIN [Suspect]
     Indication: PRODUCT USED FOR UNKNOWN INDICATION
     Route: 065
  2. METHOTREXATE SODIUM [Suspect]
     Indication: PRODUCT USED FOR UNKNOWN INDICATION
     Route: 065
  3. MEPACT [Suspect]
     Indication: PRODUCT USED FOR UNKNOWN INDICATION
     Route: 042
  4. DOXORUBICIN HYDROCHLORIDE [Suspect]
     Indication: PRODUCT USED FOR UNKNOWN INDICATION
     Route: 065

REACTIONS (11)
  - MALAISE [None]
  - CHILLS [None]
  - NEUTROPENIA [None]
  - BLOOD PRESSURE DECREASED [None]
  - TREMOR [None]
  - HYPOCALCAEMIA [None]
  - PYREXIA [None]
  - FEELING HOT [None]
  - ABDOMINAL PAIN [None]
  - TACHYCARDIA [None]
  - ANAEMIA [None]
